FAERS Safety Report 6270868-5 (Version None)
Quarter: 2009Q3

REPORT INFORMATION
  Report Type: 
  Country: None (occurrence: None)
  Receive Date: 20090715
  Receipt Date: 20090630
  Transmission Date: 20100115
  Serious: Yes (Hospitalization)
  Sender: FDA-Public Use
  Company Number: US-JNJFOC-20070606618

PATIENT
  Age: 81 Year
  Sex: Male
  Weight: 87.0906 kg

DRUGS (6)
  1. DACOGEN [Suspect]
     Indication: MYELODYSPLASTIC SYNDROME
     Dosage: 20 MG/M2, IN 1 DAY, INTRAVENOUS
     Route: 042
     Dates: start: 20061016, end: 20061020
  2. NIACIN (NICOTINIC ACID) UNSPECIFIED [Concomitant]
  3. FOLIC ACID [Concomitant]
  4. ZOCOR [Concomitant]
  5. ZOLOFT (SERTRALINE) UNSPECIFIED [Concomitant]
  6. MULTIVITAMINS (MULTIVITAMINS) UNSPECIFIED [Concomitant]

REACTIONS (5)
  - DYSPNOEA [None]
  - HAEMATOCRIT DECREASED [None]
  - HAEMOGLOBIN DECREASED [None]
  - HYPOXIA [None]
  - WHITE BLOOD CELL COUNT DECREASED [None]
